FAERS Safety Report 14342641 (Version 1)
Quarter: 2018Q1

REPORT INFORMATION
  Report Type: Other
  Country: IT (occurrence: IT)
  Receive Date: 20180102
  Receipt Date: 20180102
  Transmission Date: 20180509
  Serious: Yes (Hospitalization)
  Sender: FDA-Public Use
  Company Number: IT-ACTELION-A-CH2017-164607

PATIENT
  Age: 31 Year
  Sex: Female

DRUGS (2)
  1. SILDENAFIL. [Concomitant]
     Active Substance: SILDENAFIL
  2. EPOPROSTENOL SODIUM. [Suspect]
     Active Substance: EPOPROSTENOL SODIUM
     Indication: PULMONARY ARTERIAL HYPERTENSION
     Dosage: 8 NG/KG, PER MIN
     Route: 042

REACTIONS (7)
  - Laparotomy [Unknown]
  - Hypoxia [Unknown]
  - Normal newborn [Unknown]
  - Exposure during pregnancy [Recovered/Resolved]
  - Caesarean section [Unknown]
  - Intra-abdominal haemorrhage [Unknown]
  - Hysterectomy [Unknown]
